FAERS Safety Report 12933841 (Version 1)
Quarter: 2016Q4

REPORT INFORMATION
  Report Type: Report from Study
  Country: CA (occurrence: CA)
  Receive Date: 20161111
  Receipt Date: 20161111
  Transmission Date: 20170207
  Serious: Yes (Other)
  Sender: FDA-Public Use
  Company Number: CA-JNJFOC-20160816192

PATIENT
  Age: 55 Year
  Sex: Female
  Weight: 77.11 kg

DRUGS (11)
  1. CELEBREX [Concomitant]
     Active Substance: CELECOXIB
     Route: 065
  2. SIMPONI [Suspect]
     Active Substance: GOLIMUMAB
     Indication: PSORIATIC ARTHROPATHY
     Dosage: DURATION:LESS THAN A MONTH
     Route: 058
     Dates: start: 20160802
  3. SULFASALAZINE. [Suspect]
     Active Substance: SULFASALAZINE
     Indication: PRODUCT USED FOR UNKNOWN INDICATION
     Route: 065
     Dates: end: 20160817
  4. METHOTREXATE. [Suspect]
     Active Substance: METHOTREXATE
     Indication: PRODUCT USED FOR UNKNOWN INDICATION
     Route: 065
     Dates: end: 20160817
  5. CYMBALTA [Concomitant]
     Active Substance: DULOXETINE HYDROCHLORIDE
     Indication: NEURALGIA
     Route: 065
     Dates: start: 201609
  6. SULFASALAZINE. [Concomitant]
     Active Substance: SULFASALAZINE
     Indication: ARTHRITIS
     Route: 065
     Dates: start: 201602, end: 201608
  7. MORPHINE [Concomitant]
     Active Substance: MORPHINE
     Indication: ANTIINFLAMMATORY THERAPY
     Dosage: AS NEEDED
     Route: 065
     Dates: start: 20161031
  8. MELOXICAM. [Concomitant]
     Active Substance: MELOXICAM
     Indication: ANTIINFLAMMATORY THERAPY
     Route: 065
     Dates: start: 20161031
  9. LYRICA [Concomitant]
     Active Substance: PREGABALIN
     Indication: FIBROMYALGIA
     Route: 065
     Dates: start: 201609
  10. PLAQUENIL [Concomitant]
     Active Substance: HYDROXYCHLOROQUINE SULFATE
     Indication: ARTHRITIS
     Route: 065
  11. METHOTREXATE. [Concomitant]
     Active Substance: METHOTREXATE
     Indication: ARTHRITIS
     Route: 065
     Dates: start: 201512, end: 201608

REACTIONS (2)
  - Fibromyalgia [Unknown]
  - Hepatitis [Unknown]

NARRATIVE: CASE EVENT DATE: 20160817
